FAERS Safety Report 19697751 (Version 1)
Quarter: 2021Q3

REPORT INFORMATION
  Report Type: Spontaneous
  Country: US (occurrence: US)
  Receive Date: 20210813
  Receipt Date: 20210813
  Transmission Date: 20211014
  Serious: Yes (Hospitalization)
  Sender: FDA-Public Use
  Company Number: None

PATIENT
  Age: 52 Year
  Sex: Female
  Weight: 102.5 kg

DRUGS (23)
  1. IMDEVIMAB. [Suspect]
     Active Substance: IMDEVIMAB
     Indication: COVID-19
     Dosage: ?          OTHER FREQUENCY:ONCE;?
     Route: 042
     Dates: start: 20210806, end: 20210806
  2. ASCORBIC ACID, VITAMIN C [Concomitant]
  3. CASIRIVIMAB. [Suspect]
     Active Substance: CASIRIVIMAB
     Indication: COVID-19
     Dosage: ?          OTHER FREQUENCY:ONCE;?
     Route: 042
     Dates: start: 20210806, end: 20210806
  4. SENNA [Concomitant]
     Active Substance: SENNA LEAF\SENNOSIDES\SENNOSIDES A AND B
  5. OXYGEN. [Concomitant]
     Active Substance: OXYGEN
     Dates: start: 20210125
  6. PANTOPRAZOLE [Concomitant]
     Active Substance: PANTOPRAZOLE
  7. METFORMIN [Concomitant]
     Active Substance: METFORMIN HYDROCHLORIDE
     Dates: start: 20210513
  8. ZINC SULFATE. [Concomitant]
     Active Substance: ZINC SULFATE
  9. AUGMENTIN [Concomitant]
     Active Substance: AMOXICILLIN\CLAVULANATE POTASSIUM
     Dates: start: 20210722
  10. BREO ELLIPTA [Concomitant]
     Active Substance: FLUTICASONE FUROATE\VILANTEROL TRIFENATATE
  11. BENADRYL [Concomitant]
     Active Substance: DIPHENHYDRAMINE HYDROCHLORIDE
  12. ROBITUSSIN DM [Concomitant]
     Active Substance: DEXTROMETHORPHAN HYDROBROMIDE\GUAIFENESIN
  13. VITAMIN D3 [Concomitant]
     Active Substance: CHOLECALCIFEROL
  14. ATIVAN [Concomitant]
     Active Substance: LORAZEPAM
  15. IPRATROPIUM?ALBUTEROL [Concomitant]
     Active Substance: ALBUTEROL\IPRATROPIUM
  16. ACYCLOVIR. [Concomitant]
     Active Substance: ACYCLOVIR
     Dates: start: 20210407
  17. PANTOPRAZOLE [Concomitant]
     Active Substance: PANTOPRAZOLE
  18. TYLENOL [Concomitant]
     Active Substance: ACETAMINOPHEN
  19. PREDNISONE. [Concomitant]
     Active Substance: PREDNISONE
  20. LASIX [Concomitant]
     Active Substance: FUROSEMIDE
  21. ZOFRAN [Concomitant]
     Active Substance: ONDANSETRON HYDROCHLORIDE
  22. FLUTICASONE FUROATEVILANTEROL [Concomitant]
     Dates: start: 20210730
  23. METOPROLOL. [Concomitant]
     Active Substance: METOPROLOL

REACTIONS (9)
  - Heart rate increased [None]
  - Blood pressure increased [None]
  - Anxiety [None]
  - Hypoxia [None]
  - Chills [None]
  - Sinus tachycardia [None]
  - Respiratory distress [None]
  - Infusion related reaction [None]
  - Use of accessory respiratory muscles [None]

NARRATIVE: CASE EVENT DATE: 20210806
